FAERS Safety Report 26037449 (Version 1)
Quarter: 2025Q4

REPORT INFORMATION
  Report Type: Spontaneous
  Country: GB (occurrence: GB)
  Receive Date: 20251112
  Receipt Date: 20251112
  Transmission Date: 20260117
  Serious: Yes (Other)
  Sender: ASTELLAS
  Company Number: GB-MHRA-TPP63897874C5299078YC1762269041005

PATIENT
  Age: 93 Year
  Sex: Female

DRUGS (6)
  1. SOLIFENACIN [Suspect]
     Active Substance: SOLIFENACIN
     Indication: Ill-defined disorder
     Route: 065
     Dates: start: 20251104
  2. CALCIUM CARBONATE [Concomitant]
     Active Substance: CALCIUM CARBONATE
     Indication: Ill-defined disorder
     Dosage: TAKE ONE TWICE DAILY
     Route: 065
     Dates: start: 20251007
  3. APIXABAN [Concomitant]
     Active Substance: APIXABAN
     Indication: Ill-defined disorder
     Dosage: TAKE ONE TWICE DAILY
     Route: 065
     Dates: start: 20251007
  4. POLYETHYLENE GLYCOL 3350\POTASSIUM CHLORIDE\SODIUM BICARBONATE\SODIUM [Concomitant]
     Active Substance: POLYETHYLENE GLYCOL 3350\POTASSIUM CHLORIDE\SODIUM BICARBONATE\SODIUM CHLORIDE
     Indication: Constipation
     Dosage: ONE SACHET TWICE DAILY AS REQUIRED FOR CONSTIPATION
     Route: 065
     Dates: start: 20251007
  5. ACETAMINOPHEN [Concomitant]
     Active Substance: ACETAMINOPHEN
     Indication: Ill-defined disorder
     Dosage: TAKE 2 TABLETS UP TO FOUR TIMES DAILY, AS REQUIRED
     Route: 065
     Dates: start: 20251007
  6. SENNA LEAF [Concomitant]
     Active Substance: SENNA LEAF
     Indication: Constipation
     Dosage: TAKE 2 AT NIGHT, AS REQUIRED FOR CONSTIPATION
     Route: 065
     Dates: start: 20251007

REACTIONS (1)
  - Ocular hyperaemia [Recovered/Resolved]

NARRATIVE: CASE EVENT DATE: 20251104
